FAERS Safety Report 20451787 (Version 2)
Quarter: 2022Q1

REPORT INFORMATION
  Report Type: Spontaneous
  Country: US (occurrence: US)
  Receive Date: 20220209
  Receipt Date: 20220217
  Transmission Date: 20220424
  Serious: No
  Sender: FDA-Public Use
  Company Number: US-SANOFI-00959133

PATIENT
  Sex: Male

DRUGS (1)
  1. LANTUS SOLOSTAR [Suspect]
     Active Substance: INSULIN GLARGINE
     Indication: Blood glucose increased

REACTIONS (1)
  - Drug ineffective [Unknown]
